FAERS Safety Report 25966151 (Version 1)
Quarter: 2025Q4

REPORT INFORMATION
  Report Type: Spontaneous
  Country: US (occurrence: US)
  Receive Date: 20251028
  Receipt Date: 20251028
  Transmission Date: 20260117
  Serious: No
  Sender: RANBAXY
  Company Number: US-MIMS-SUN-2025-USA-54334

PATIENT
  Sex: Female

DRUGS (1)
  1. BETAMETHASONE DIPROPIONATE\CALCIPOTRIENE [Suspect]
     Active Substance: BETAMETHASONE DIPROPIONATE\CALCIPOTRIENE
     Indication: Product used for unknown indication
     Dosage: (ONCE A DAY OR SOMETIMES ONCE EVERY OTHER DAY)
     Route: 065

REACTIONS (2)
  - Inappropriate schedule of product administration [Unknown]
  - Product physical issue [Unknown]
